FAERS Safety Report 4371792-5 (Version None)
Quarter: 2004Q2

REPORT INFORMATION
  Report Type: 
  Country: None (occurrence: None)
  Receive Date: 20040604
  Receipt Date: 20040604
  Transmission Date: 20050107
  Serious: Yes (Hospitalization)
  Sender: FDA-Public Use
  Company Number: None

PATIENT
  Sex: Male
  Weight: 82.9 kg

DRUGS (9)
  1. KETOCONAZOLE [Suspect]
     Indication: PROSTATE CANCER
     Dosage: 400 MG TID
     Dates: start: 20040316
  2. HYDROCORTISONE [Suspect]
     Indication: PROSTATE CANCER
     Dosage: 20 MG BID
     Dates: start: 20040316
  3. DILTIAZEM [Concomitant]
  4. SIMVASTATIN [Concomitant]
  5. WARFARIN SODIUM [Concomitant]
  6. ZOLADEX [Concomitant]
  7. OXYBUTININ [Concomitant]
  8. ALENDRONATE SODIUM [Concomitant]
  9. CALCIUM AND VIT D [Concomitant]

REACTIONS (3)
  - FALL [None]
  - HIP FRACTURE [None]
  - OSTEOPOROSIS [None]
